FAERS Safety Report 6544991-1 (Version None)
Quarter: 2010Q1

REPORT INFORMATION
  Report Type: 
  Country: None (occurrence: None)
  Receive Date: 20100121
  Receipt Date: 20100114
  Transmission Date: 20100710
  Serious: Yes (Life-Threatening)
  Sender: FDA-Public Use
  Company Number: A0839812A

PATIENT
  Sex: Female
  Weight: 95 kg

DRUGS (2)
  1. OFATUMUMAB [Suspect]
     Route: 042
     Dates: start: 20090916, end: 20091214
  2. CHLORAMBUCIL [Suspect]
     Dates: start: 20090916

REACTIONS (1)
  - NEUTROPENIA [None]
